FAERS Safety Report 7407678-9 (Version None)
Quarter: 2011Q2

REPORT INFORMATION
  Report Type: 
  Country: None (occurrence: None)
  Receive Date: 20110412
  Receipt Date: 20101130
  Transmission Date: 20111010
  Serious: Yes (Hospitalization, Other)
  Sender: FDA-Public Use
  Company Number: JP-BAYER-201015587BYL

PATIENT
  Age: 63 Year
  Sex: Male
  Weight: 71 kg

DRUGS (11)
  1. CLARITIN [Concomitant]
     Indication: BRONCHITIS CHRONIC
     Dosage: 10 MG, QD
     Route: 048
     Dates: start: 20101019, end: 20101104
  2. ZYLORIC [Concomitant]
     Indication: HYPERURICAEMIA
     Dosage: 100 MG, QD
     Route: 048
     Dates: start: 20101021, end: 20101104
  3. OXYCONTIN [Concomitant]
     Indication: CANCER PAIN
     Dosage: 10 MG, QD
     Route: 048
     Dates: start: 20101025, end: 20101102
  4. KERATINAMIN [Concomitant]
     Indication: RASH
     Dosage: UNK
     Dates: start: 20101028
  5. MAGLAX [Concomitant]
     Indication: CONSTIPATION
     Dosage: 990 MG, QD
     Route: 048
     Dates: start: 20101015, end: 20101104
  6. URSO 250 [Concomitant]
     Indication: HEPATIC CIRRHOSIS
     Dosage: 600 MG, QD
     Route: 048
     Dates: start: 20101015, end: 20101104
  7. ASVERIN [Concomitant]
     Indication: BRONCHITIS CHRONIC
     Dosage: 60 MG, QD
     Route: 048
     Dates: start: 20101019, end: 20101104
  8. NEXAVAR [Suspect]
     Indication: HEPATIC NEOPLASM MALIGNANT
     Dosage: 400 MG (DAILY DOSE), , ORAL
     Route: 048
     Dates: start: 20101101, end: 20101104
  9. NOVAMIN [Concomitant]
     Indication: VOMITING
     Dosage: 10 MG, QD
     Route: 048
     Dates: start: 20101025, end: 20101103
  10. ALDACTONE [Concomitant]
     Indication: OEDEMA PERIPHERAL
     Dosage: 25 MG, QD
     Route: 048
     Dates: start: 20101008, end: 20101104
  11. TAKEPRON [Concomitant]
     Indication: VARICES OESOPHAGEAL
     Dosage: 15 MG, QD
     Route: 048
     Dates: start: 20101021, end: 20101104

REACTIONS (5)
  - DELIRIUM [None]
  - HEPATIC FAILURE [None]
  - RASH [None]
  - LOWER GASTROINTESTINAL HAEMORRHAGE [None]
  - SOMNOLENCE [None]
